FAERS Safety Report 4422059-8 (Version None)
Quarter: 2004Q3

REPORT INFORMATION
  Report Type: 
  Country: None (occurrence: None)
  Receive Date: 20040727
  Receipt Date: 20040719
  Transmission Date: 20050211
  Serious: Yes (Other)
  Sender: FDA-Public Use
  Company Number: 200410134BBE

PATIENT
  Age: 48 Year
  Sex: Female
  Weight: 70.3075 kg

DRUGS (44)
  1. GAMIMUNE N 10% [Suspect]
     Indication: MULTIPLE SCLEROSIS
     Dosage: 30 G, Q1MON, INTRAVENOUS
     Route: 042
     Dates: start: 20030814
  2. GAMIMUNE N 10% [Suspect]
     Indication: SYSTEMIC LUPUS ERYTHEMATOSUS
     Dosage: 30 G, Q1MON, INTRAVENOUS
     Route: 042
     Dates: start: 20030814
  3. GAMIMUNE N 10% [Suspect]
     Indication: MULTIPLE SCLEROSIS
     Dosage: 30 G, Q1MON, INTRAVENOUS
     Route: 042
     Dates: start: 20030814
  4. GAMIMUNE N 10% [Suspect]
     Indication: SYSTEMIC LUPUS ERYTHEMATOSUS
     Dosage: 30 G, Q1MON, INTRAVENOUS
     Route: 042
     Dates: start: 20030814
  5. GAMIMUNE N 10% [Suspect]
     Indication: MULTIPLE SCLEROSIS
     Dosage: 30 G, Q1MON, INTRAVENOUS
     Route: 042
     Dates: start: 20030911
  6. GAMIMUNE N 10% [Suspect]
     Indication: SYSTEMIC LUPUS ERYTHEMATOSUS
     Dosage: 30 G, Q1MON, INTRAVENOUS
     Route: 042
     Dates: start: 20030911
  7. GAMIMUNE N 10% [Suspect]
     Indication: MULTIPLE SCLEROSIS
     Dosage: 30 G, Q1MON, INTRAVENOUS
     Route: 042
     Dates: start: 20030911
  8. GAMIMUNE N 10% [Suspect]
     Indication: SYSTEMIC LUPUS ERYTHEMATOSUS
     Dosage: 30 G, Q1MON, INTRAVENOUS
     Route: 042
     Dates: start: 20030911
  9. GAMIMUNE N 10% [Suspect]
     Indication: MULTIPLE SCLEROSIS
     Dosage: 30 G, Q1MON, INTRAVENOUS
     Route: 042
     Dates: start: 20031008
  10. GAMIMUNE N 10% [Suspect]
     Indication: SYSTEMIC LUPUS ERYTHEMATOSUS
     Dosage: 30 G, Q1MON, INTRAVENOUS
     Route: 042
     Dates: start: 20031008
  11. GAMIMUNE N 10% [Suspect]
     Indication: MULTIPLE SCLEROSIS
     Dosage: 30 G, Q1MON, INTRAVENOUS
     Route: 042
     Dates: start: 20031008
  12. GAMIMUNE N 10% [Suspect]
     Indication: SYSTEMIC LUPUS ERYTHEMATOSUS
     Dosage: 30 G, Q1MON, INTRAVENOUS
     Route: 042
     Dates: start: 20031008
  13. GAMIMUNE N 10% [Suspect]
     Indication: MULTIPLE SCLEROSIS
     Dosage: 30 G, Q1MON, INTRAVENOUS
     Route: 042
     Dates: start: 20031105
  14. GAMIMUNE N 10% [Suspect]
     Indication: SYSTEMIC LUPUS ERYTHEMATOSUS
     Dosage: 30 G, Q1MON, INTRAVENOUS
     Route: 042
     Dates: start: 20031105
  15. GAMIMUNE N 10% [Suspect]
     Indication: MULTIPLE SCLEROSIS
     Dosage: 30 G, Q1MON, INTRAVENOUS
     Route: 042
     Dates: start: 20031205
  16. GAMIMUNE N 10% [Suspect]
     Indication: SYSTEMIC LUPUS ERYTHEMATOSUS
     Dosage: 30 G, Q1MON, INTRAVENOUS
     Route: 042
     Dates: start: 20031205
  17. GAMIMUNE N 10% [Suspect]
     Indication: MULTIPLE SCLEROSIS
     Dosage: 30 G, Q1MON, INTRAVENOUS
     Route: 042
     Dates: start: 20031205
  18. GAMIMUNE N 10% [Suspect]
     Indication: SYSTEMIC LUPUS ERYTHEMATOSUS
     Dosage: 30 G, Q1MON, INTRAVENOUS
     Route: 042
     Dates: start: 20031205
  19. GAMIMUNE N 10% [Suspect]
     Indication: MULTIPLE SCLEROSIS
     Dosage: 30 G, Q1MON, INTRAVENOUS
     Route: 042
     Dates: start: 20040112
  20. GAMIMUNE N 10% [Suspect]
     Indication: SYSTEMIC LUPUS ERYTHEMATOSUS
     Dosage: 30 G, Q1MON, INTRAVENOUS
     Route: 042
     Dates: start: 20040112
  21. GAMIMUNE N 10% [Suspect]
     Indication: MULTIPLE SCLEROSIS
     Dosage: 30 G, Q1MON, INTRAVENOUS
     Route: 042
     Dates: start: 20040112
  22. GAMIMUNE N 10% [Suspect]
     Indication: SYSTEMIC LUPUS ERYTHEMATOSUS
     Dosage: 30 G, Q1MON, INTRAVENOUS
     Route: 042
     Dates: start: 20040112
  23. GAMIMUNE N 10% [Suspect]
     Indication: MULTIPLE SCLEROSIS
     Dosage: 30 G, Q1MON, INTRAVENOUS
     Route: 042
     Dates: start: 20040219
  24. GAMIMUNE N 10% [Suspect]
     Indication: SYSTEMIC LUPUS ERYTHEMATOSUS
     Dosage: 30 G, Q1MON, INTRAVENOUS
     Route: 042
     Dates: start: 20040219
  25. GAMIMUNE N 10% [Suspect]
     Indication: MULTIPLE SCLEROSIS
     Dosage: 30 G, Q1MON, INTRAVENOUS
     Route: 042
     Dates: start: 20040219
  26. GAMIMUNE N 10% [Suspect]
     Indication: SYSTEMIC LUPUS ERYTHEMATOSUS
     Dosage: 30 G, Q1MON, INTRAVENOUS
     Route: 042
     Dates: start: 20040219
  27. GAMIMUNE N 10% [Suspect]
     Indication: MULTIPLE SCLEROSIS
     Dosage: 30 G, Q1MON, INTRAVENOUS
     Route: 042
     Dates: start: 20040318
  28. GAMIMUNE N 10% [Suspect]
     Indication: SYSTEMIC LUPUS ERYTHEMATOSUS
     Dosage: 30 G, Q1MON, INTRAVENOUS
     Route: 042
     Dates: start: 20040318
  29. GAMIMUNE N 10% [Suspect]
     Indication: MULTIPLE SCLEROSIS
     Dosage: 30 G, Q1MON, INTRAVENOUS
     Route: 042
     Dates: start: 20040318
  30. GAMIMUNE N 10% [Suspect]
     Indication: SYSTEMIC LUPUS ERYTHEMATOSUS
     Dosage: 30 G, Q1MON, INTRAVENOUS
     Route: 042
     Dates: start: 20040318
  31. GAMIMUNE N 10% [Suspect]
  32. GAMIMUNE N 10% [Suspect]
  33. GAMIMUNE N 10% [Suspect]
  34. GAMIMUNE N 10% [Suspect]
  35. GAMIMUNE N 10% [Suspect]
  36. GAMIMUNE N 10% [Suspect]
  37. GAMIMUNE N 10% [Suspect]
  38. GAMIMUNE N 10% [Suspect]
  39. GAMIMUNE N 10% [Suspect]
  40. GAMIMUNE N 10% [Suspect]
  41. GAMIMUNE N 10% [Suspect]
  42. GAMIMUNE N 10% [Suspect]
  43. GAMIMUNE N 10% [Suspect]
  44. GAMIMUNE N 10% [Suspect]

REACTIONS (3)
  - HEPATITIS B POSITIVE [None]
  - HEPATITIS C POSITIVE [None]
  - PHARMACEUTICAL PRODUCT COMPLAINT [None]
